FAERS Safety Report 13700860 (Version 1)
Quarter: 2017Q2

REPORT INFORMATION
  Report Type: Spontaneous
  Country: US (occurrence: US)
  Receive Date: 20170628
  Receipt Date: 20170628
  Transmission Date: 20170830
  Serious: Yes (Disabling)
  Sender: FDA-Public Use
  Company Number: None

PATIENT
  Age: 36 Year
  Sex: Female
  Weight: 123.3 kg

DRUGS (6)
  1. FLAX OIL [Concomitant]
  2. PROBIOTIC [Concomitant]
     Active Substance: PROBIOTICS NOS
  3. XANAX [Suspect]
     Active Substance: ALPRAZOLAM
     Indication: DRUG RESISTANCE
     Dosage: ?          OTHER STRENGTH:MG;?
     Route: 048
     Dates: start: 20141101, end: 20160330
  4. OMNEPROZOLE [Concomitant]
  5. TUMERIC [Concomitant]
     Active Substance: HERBALS\TURMERIC
  6. KLONIPIN [Suspect]
     Active Substance: CLONAZEPAM
     Indication: NIGHTMARE
     Route: 048
     Dates: start: 19980501, end: 20141101

REACTIONS (41)
  - Pain [None]
  - Dyspepsia [None]
  - Diplopia [None]
  - Influenza like illness [None]
  - Gastritis [None]
  - Oesophagitis [None]
  - Depersonalisation/derealisation disorder [None]
  - Dry eye [None]
  - Vision blurred [None]
  - Hyperacusis [None]
  - Ocular hyperaemia [None]
  - Lethargy [None]
  - Memory impairment [None]
  - Muscle rigidity [None]
  - Malaise [None]
  - Agoraphobia [None]
  - Formication [None]
  - Dizziness [None]
  - Nausea [None]
  - Duodenitis [None]
  - Suicidal ideation [None]
  - Withdrawal syndrome [None]
  - Derealisation [None]
  - Paraesthesia [None]
  - Hypersensitivity [None]
  - Tremor [None]
  - Personality disorder [None]
  - Depression [None]
  - Dysphagia [None]
  - Cystitis [None]
  - Dependent personality disorder [None]
  - Vitreous floaters [None]
  - Palpitations [None]
  - Irritability [None]
  - Asthenia [None]
  - Abdominal pain [None]
  - Urinary incontinence [None]
  - Eye pain [None]
  - Fatigue [None]
  - Insomnia [None]
  - Quality of life decreased [None]

NARRATIVE: CASE EVENT DATE: 19980501
